FAERS Safety Report 7525926-1 (Version None)
Quarter: 2011Q2

REPORT INFORMATION
  Report Type: 
  Country: None (occurrence: None)
  Receive Date: 20110606
  Receipt Date: 20110530
  Transmission Date: 20111010
  Serious: Yes (Hospitalization)
  Sender: FDA-Public Use
  Company Number: D0071576A

PATIENT
  Age: 63 Year
  Sex: Male
  Weight: 101 kg

DRUGS (1)
  1. VOTRIENT [Suspect]
     Indication: RENAL CELL CARCINOMA
     Dosage: 200MG PER DAY
     Route: 048
     Dates: start: 20101029, end: 20101115

REACTIONS (1)
  - CONVULSION [None]
